FAERS Safety Report 15279377 (Version 1)
Quarter: 2018Q3

REPORT INFORMATION
  Report Type: Report from Study
  Country: US (occurrence: US)
  Receive Date: 20180815
  Receipt Date: 20180815
  Transmission Date: 20181010
  Serious: Yes (Hospitalization, Other)
  Sender: FDA-Public Use
  Company Number: PHEH2018US031639

PATIENT
  Age: 67 Year
  Sex: Female

DRUGS (1)
  1. ENTRESTO [Suspect]
     Active Substance: SACUBITRIL\VALSARTAN
     Indication: CARDIAC FAILURE CONGESTIVE
     Dosage: 1 DF (49 MG SACUBITRIL/51 MG VALSARTAN), BID
     Route: 048
     Dates: start: 201702

REACTIONS (3)
  - Bronchitis [Unknown]
  - Respiratory failure [Unknown]
  - Cough [Unknown]

NARRATIVE: CASE EVENT DATE: 201801
